FAERS Safety Report 20795205 (Version 1)
Quarter: 2022Q2

REPORT INFORMATION
  Report Type: Report from Study
  Country: US (occurrence: US)
  Receive Date: 20220506
  Receipt Date: 20220506
  Transmission Date: 20220720
  Serious: Yes (Hospitalization)
  Sender: FDA-Public Use
  Company Number: US-VERTEX PHARMACEUTICALS-2022-006657

PATIENT
  Age: 63 Year
  Sex: Male

DRUGS (21)
  1. TRIKAFTA [Suspect]
     Active Substance: ELEXACAFTOR\IVACAFTOR\TEZACAFTOR
     Indication: Cystic fibrosis
     Dosage: 2 ORANGE TABS AM AND 1 BLUE TAB PM
     Route: 048
     Dates: start: 20201022
  2. CALCIUM CARBONATE\CHOLECALCIFEROL [Concomitant]
     Active Substance: CALCIUM CARBONATE\CHOLECALCIFEROL
  3. FERROUS SULFATE [Concomitant]
     Active Substance: FERROUS SULFATE
  4. MELATONIN [Concomitant]
     Active Substance: MELATONIN
  5. ASCORBIC ACID [Concomitant]
     Active Substance: ASCORBIC ACID
  6. CHOLECALCIFEROL [Concomitant]
     Active Substance: CHOLECALCIFEROL
  7. ALBUTEROL [Concomitant]
     Active Substance: ALBUTEROL
     Route: 055
  8. AZITHROMYCIN [Concomitant]
     Active Substance: AZITHROMYCIN
  9. ESOMEPRAZOLE [Concomitant]
     Active Substance: ESOMEPRAZOLE
  10. FINASTERIDE [Concomitant]
     Active Substance: FINASTERIDE
  11. FLUTICASONE [Concomitant]
     Active Substance: FLUTICASONE
     Route: 045
  12. GABAPENTIN [Concomitant]
     Active Substance: GABAPENTIN
  13. LORAZEPAM [Concomitant]
     Active Substance: LORAZEPAM
  14. LOSARTAN [Concomitant]
     Active Substance: LOSARTAN
  15. MONTELUKAST [Concomitant]
     Active Substance: MONTELUKAST SODIUM
  16. PULMOZYME [Concomitant]
     Active Substance: DORNASE ALFA
  17. SYMBICORT [Concomitant]
     Active Substance: BUDESONIDE\FORMOTEROL FUMARATE DIHYDRATE
  18. TAMSULOSIN [Concomitant]
     Active Substance: TAMSULOSIN
  19. TIZANIDINE [Concomitant]
     Active Substance: TIZANIDINE
  20. TRAMADOL [Concomitant]
     Active Substance: TRAMADOL
  21. ZOLPIDEM [Concomitant]
     Active Substance: ZOLPIDEM TARTRATE

REACTIONS (1)
  - Cystic fibrosis respiratory infection suppression [Not Recovered/Not Resolved]

NARRATIVE: CASE EVENT DATE: 20220422
